FAERS Safety Report 4836856-8 (Version None)
Quarter: 2005Q4

REPORT INFORMATION
  Report Type: 
  Country: None (occurrence: None)
  Receive Date: 20051123
  Receipt Date: 20050927
  Transmission Date: 20060501
  Serious: Yes (Hospitalization, Other)
  Sender: FDA-Public Use
  Company Number: US-MERCK-0509USA04399

PATIENT
  Age: 49 Year
  Sex: Male
  Weight: 73 kg

DRUGS (10)
  1. VIOXX [Suspect]
     Indication: ARTHRITIS
     Route: 048
     Dates: start: 19991018, end: 20040901
  2. CELEXA [Concomitant]
     Route: 065
  3. ULTRAM [Concomitant]
     Route: 065
  4. FLOVENT [Concomitant]
     Route: 065
  5. RANITIDINE [Concomitant]
     Route: 065
  6. COMBIVENT [Concomitant]
     Route: 065
  7. HYDROXYZINE PAMOATE [Concomitant]
     Route: 065
  8. TEMAZEPAM [Concomitant]
     Route: 065
  9. TOPROL-XL [Concomitant]
     Route: 065
  10. NITROSTAT [Concomitant]
     Route: 065

REACTIONS (6)
  - ACUTE MYOCARDIAL INFARCTION [None]
  - COMPRESSION FRACTURE [None]
  - CORONARY ARTERY STENOSIS [None]
  - LUNG DISORDER [None]
  - PULMONARY EMBOLISM [None]
  - SPINAL OSTEOARTHRITIS [None]
